FAERS Safety Report 7876250-9 (Version None)
Quarter: 2011Q4

REPORT INFORMATION
  Report Type: 
  Country: None (occurrence: None)
  Receive Date: 20111031
  Receipt Date: 20111024
  Transmission Date: 20120403
  Serious: Yes (Hospitalization)
  Sender: FDA-Public Use
  Company Number: US-BRISTOL-MYERS SQUIBB COMPANY-13950001

PATIENT
  Age: 59 Year
  Sex: Male
  Weight: 62 kg

DRUGS (2)
  1. ERBITUX [Suspect]
     Indication: PHARYNGEAL CANCER STAGE UNSPECIFIED
     Dates: start: 20070723, end: 20070904
  2. CISPLATIN [Suspect]
     Indication: PHARYNGEAL CANCER STAGE UNSPECIFIED
     Dates: start: 20070723, end: 20070820

REACTIONS (7)
  - PNEUMONIA [None]
  - OROPHARYNGEAL PAIN [None]
  - LYMPHOPENIA [None]
  - STOMATITIS [None]
  - NAUSEA [None]
  - VOMITING [None]
  - PHARYNGEAL INFLAMMATION [None]
